FAERS Safety Report 7428559-0 (Version None)
Quarter: 2011Q2

REPORT INFORMATION
  Report Type: 
  Country: None (occurrence: None)
  Receive Date: 20110421
  Receipt Date: 20081001
  Transmission Date: 20111010
  Serious: Yes (Death, Other)
  Sender: FDA-Public Use
  Company Number: US-BAYER-200836275NA

PATIENT
  Age: 72 Year
  Sex: Female
  Weight: 49.433 kg

DRUGS (30)
  1. ZOCOR [Concomitant]
     Dosage: 10 MG, QD
     Route: 048
  2. PLAVIX [Concomitant]
     Dosage: 75 MG, QD
     Route: 048
  3. ACETYLCYSTEINE [Concomitant]
     Dosage: 600 MG, BID
     Route: 048
     Dates: start: 20011230, end: 20011231
  4. KEFZOL [Concomitant]
     Dosage: 1 GM
     Route: 042
     Dates: start: 20010101, end: 20010101
  5. SOLU-MEDROL [Concomitant]
     Dosage: 125 MG
     Route: 042
     Dates: start: 20010101
  6. TENORMIN [Concomitant]
     Dosage: 50 MG, BID
     Route: 048
  7. LASIX [Concomitant]
     Dosage: 20 MG
     Route: 042
     Dates: start: 20010101
  8. INTEGRILIN [Concomitant]
     Dosage: 10ML/HOUR
     Route: 042
     Dates: start: 20011230
  9. PLAVIX [Concomitant]
     Dosage: 300 MG DAILY
     Route: 048
     Dates: start: 20011230
  10. PRILOSEC [Concomitant]
     Dosage: 30 MG, QD
     Route: 048
     Dates: start: 20011230
  11. MORPHINE SULFATE [Concomitant]
     Dosage: 2MG
     Route: 042
     Dates: start: 20010101
  12. VERSED [Concomitant]
     Dosage: UNK
     Dates: start: 20020101
  13. TRASYLOL [Suspect]
     Indication: CORONARY ARTERY BYPASS
     Dosage: UNK
     Route: 042
     Dates: start: 20011201, end: 20011201
  14. NORVASC [Concomitant]
     Dosage: 10 MG, QD
  15. NEPHROVITE [VIT C,VIT H,B5,B12,B9,B3,B6,B2,B1 HCL] [Concomitant]
     Dosage: 1 TAB DAILY
     Route: 048
  16. ISORDIL [Concomitant]
     Dosage: 30 MG, QD
     Route: 048
  17. ALLOPURINOL [Concomitant]
     Dosage: 100 MG, QD
     Route: 048
  18. NITROGLYCERIN [Concomitant]
     Dosage: 15CC/HOUR
     Route: 042
     Dates: start: 20011230
  19. HEPARIN [Concomitant]
     Dosage: 8CC/HR
     Route: 042
     Dates: start: 20011230
  20. SOLU-CORTEF [Concomitant]
     Dosage: 125 MG
     Route: 042
     Dates: start: 20011230, end: 20011230
  21. LOPRESSOR [Concomitant]
     Dosage: 25 MG, BID
     Route: 048
     Dates: start: 20011230
  22. ROCALTROL [Concomitant]
     Dosage: .25 MCG/24HR, UNK
     Route: 048
  23. ACETYLSALICYLIC ACID SRT [Concomitant]
     Dosage: 325MG DAILY
     Route: 048
     Dates: start: 20011230, end: 20011230
  24. DOBUTAMINE HCL [Concomitant]
     Dosage: UNK
     Route: 042
     Dates: start: 20010101, end: 20010101
  25. PRIMACOR [Concomitant]
     Dosage: UNK
     Route: 042
     Dates: start: 20010101, end: 20010101
  26. LASIX [Concomitant]
     Dosage: 20 MG, QD
     Route: 048
  27. EPINEPHRINE [Concomitant]
     Dosage: UNK
     Route: 042
     Dates: start: 20010101, end: 20010101
  28. NITROGLYCERIN [Concomitant]
     Dosage: 10-25 CC HR
     Route: 042
     Dates: start: 20011230
  29. HEPARIN [Concomitant]
     Dosage: UNK
     Route: 042
     Dates: start: 20010101
  30. OPTIRAY 350 [Concomitant]
     Dosage: 125CC
     Route: 042
     Dates: start: 20011230, end: 20011230

REACTIONS (13)
  - STRESS [None]
  - EMOTIONAL DISTRESS [None]
  - ANXIETY [None]
  - FEAR [None]
  - DEATH [None]
  - ANHEDONIA [None]
  - UNEVALUABLE EVENT [None]
  - PAIN [None]
  - INJURY [None]
  - RENAL FAILURE [None]
  - RENAL IMPAIRMENT [None]
  - CEREBROVASCULAR ACCIDENT [None]
  - RENAL INJURY [None]
